FAERS Safety Report 8904943 (Version 2)
Quarter: 2012Q4

REPORT INFORMATION
  Report Type: 
  Country: BE (occurrence: BE)
  Receive Date: 20121111
  Receipt Date: 20121122
  Transmission Date: 20130627
  Serious: Yes (Other)
  Sender: FDA-Public Use
  Company Number: PHHO2012BE015872

PATIENT
  Age: 53 Year
  Sex: Female

DRUGS (5)
  1. CGS 20267 [Suspect]
     Indication: BREAST CANCER
     Dosage: 2.5 mg/day
     Route: 048
     Dates: start: 20100318, end: 20101027
  2. NOLVADEX [Suspect]
     Indication: BREAST CANCER
     Dosage: 20 mg/day
     Route: 048
     Dates: start: 20080318, end: 20100317
  3. CYCLOPHOSPHAMIDE [Suspect]
     Indication: BREAST CANCER
     Dosage: 700 mg, QW3
     Route: 042
     Dates: start: 20071004, end: 20081216
  4. FARMORUBICINE [Suspect]
     Indication: BREAST CANCER
     Dosage: 140 mg, QW3
     Route: 042
     Dates: start: 20071004, end: 20080116
  5. 5 FLUORO URACIL [Suspect]
     Indication: BREAST CANCER
     Dosage: 700 mg, QW3
     Route: 042
     Dates: start: 20071004, end: 20080116

REACTIONS (1)
  - Adenocarcinoma gastric [Not Recovered/Not Resolved]
